FAERS Safety Report 7475252-4 (Version None)
Quarter: 2011Q2

REPORT INFORMATION
  Report Type: 
  Country: None (occurrence: None)
  Receive Date: 20110512
  Receipt Date: 20110427
  Transmission Date: 20111010
  Serious: Yes (Hospitalization, Other)
  Sender: FDA-Public Use
  Company Number: US-JNJFOC-20110406970

PATIENT
  Sex: Female
  Weight: 90.72 kg

DRUGS (1)
  1. ULTRAM [Suspect]
     Indication: INTERVERTEBRAL DISC DEGENERATION
     Dosage: 2 EVERY 4 TO 6 HOURS AS NEEDED
     Route: 048

REACTIONS (4)
  - DRUG EXPOSURE DURING PREGNANCY [None]
  - MALAISE [None]
  - THERAPY CESSATION [None]
  - HOSPITALISATION [None]
